FAERS Safety Report 9550043 (Version 5)
Quarter: 2014Q2

REPORT INFORMATION
  Report Type: Spontaneous
  Country: US (occurrence: US)
  Receive Date: 20130924
  Receipt Date: 20140602
  Transmission Date: 20141212
  Serious: Yes (Hospitalization, Other)
  Sender: FDA-Public Use
  Company Number: US-009507513-1201USA03447

PATIENT
  Sex: Female
  Weight: 79.82 kg

DRUGS (6)
  1. FOSAMAX [Suspect]
     Indication: OSTEOPOROSIS
     Dosage: 70 MG, QW
     Route: 048
     Dates: start: 20041123, end: 20071212
  2. FOSAMAX [Suspect]
     Indication: OSTEOPOROSIS
     Dosage: 70 MG, UNK
     Route: 048
     Dates: start: 20080410
  3. VITAMINS (UNSPECIFIED) [Concomitant]
     Dosage: 1 DF, QD
     Dates: start: 1993
  4. CALCIUM (UNSPECIFIED) [Concomitant]
     Dosage: 1 DF, QD
     Dates: start: 1993
  5. VITAMIN D (UNSPECIFIED) [Concomitant]
     Dosage: 1 DF, QD
     Dates: start: 1993
  6. ALENDRONATE SODIUM [Suspect]
     Dosage: 70 MG, UNK

REACTIONS (50)
  - Femur fracture [Unknown]
  - Intramedullary rod insertion [Recovered/Resolved]
  - Cardioversion [Unknown]
  - Renal failure [Unknown]
  - Cholecystectomy [Unknown]
  - Low turnover osteopathy [Unknown]
  - Depression [Not Recovered/Not Resolved]
  - Anxiety [Not Recovered/Not Resolved]
  - Vitamin D deficiency [Unknown]
  - Calcium deficiency [Unknown]
  - Impaired healing [Not Recovered/Not Resolved]
  - Deep vein thrombosis [Unknown]
  - Medical device removal [Recovering/Resolving]
  - Atrial fibrillation [Recovered/Resolved]
  - Oxygen saturation decreased [Recovering/Resolving]
  - Joint dislocation [Unknown]
  - Ageusia [Unknown]
  - Atrial tachycardia [Unknown]
  - Dehydration [Unknown]
  - Increased tendency to bruise [Unknown]
  - Hernia repair [Unknown]
  - Visual impairment [Unknown]
  - Pollakiuria [Unknown]
  - Breast calcifications [Unknown]
  - Atrial fibrillation [Not Recovered/Not Resolved]
  - Chronic obstructive pulmonary disease [Not Recovered/Not Resolved]
  - Emphysema [Unknown]
  - Hyperlipidaemia [Unknown]
  - Pulmonary hypertension [Unknown]
  - Pulmonary fibrosis [Unknown]
  - Adenotonsillectomy [Unknown]
  - Arrhythmia [Unknown]
  - Muscle strain [Unknown]
  - Inguinal hernia [Unknown]
  - Decreased appetite [Unknown]
  - Conjunctival pallor [Unknown]
  - Weight decreased [Unknown]
  - Carotid bruit [Unknown]
  - Cardiac murmur [Unknown]
  - Vulvovaginal dryness [Unknown]
  - Uterine cervix stenosis [Unknown]
  - Varicose vein [Unknown]
  - Fracture malunion [Unknown]
  - Drug intolerance [Unknown]
  - Constipation [Unknown]
  - Palmar erythema [Unknown]
  - Abdominal pain upper [Unknown]
  - Vomiting [Unknown]
  - Nausea [Unknown]
  - Bone pain [Unknown]
